FAERS Safety Report 6013180-1 (Version None)
Quarter: 2008Q4

REPORT INFORMATION
  Report Type: 
  Country: None (occurrence: None)
  Receive Date: 20081219
  Receipt Date: 20081209
  Transmission Date: 20090506
  Serious: Yes (Hospitalization, Other)
  Sender: FDA-Public Use
  Company Number: US-CELGENEUS-163-C5013-05080279

PATIENT
  Sex: Female
  Weight: 60.3 kg

DRUGS (3)
  1. REVLIMID [Suspect]
     Indication: MULTIPLE MYELOMA
     Route: 048
     Dates: start: 20050801, end: 20050821
  2. DEXAMETHASONE [Suspect]
     Indication: MULTIPLE MYELOMA
     Route: 048
     Dates: start: 20050801, end: 20050820
  3. HYDROCHLOROTHIAZIDE [Concomitant]
     Indication: DRUG USE FOR UNKNOWN INDICATION
     Dates: end: 20050823

REACTIONS (5)
  - DEPRESSION [None]
  - HYPONATRAEMIA [None]
  - STOMATITIS [None]
  - TREMOR [None]
  - UPPER RESPIRATORY TRACT INFECTION [None]
